FAERS Safety Report 9397414 (Version 2)
Quarter: 2013Q3

REPORT INFORMATION
  Report Type: Spontaneous
  Country: JP (occurrence: JP)
  Receive Date: 20130712
  Receipt Date: 20130806
  Transmission Date: 20140515
  Serious: Yes (Other)
  Sender: FDA-Public Use
  Company Number: JP-ELI_LILLY_AND_COMPANY-JP201307001588

PATIENT
  Age: 72 Year
  Sex: Male

DRUGS (2)
  1. GEMZAR [Suspect]
     Indication: PANCREATIC CARCINOMA
     Route: 042
  2. TS 1 [Suspect]
     Indication: PANCREATIC CARCINOMA

REACTIONS (1)
  - Myelodysplastic syndrome [Unknown]
